FAERS Safety Report 9840906 (Version 1)
Quarter: 2014Q1

REPORT INFORMATION
  Report Type: Spontaneous
  Country: SK (occurrence: SK)
  Receive Date: 20140124
  Receipt Date: 20140124
  Transmission Date: 20141002
  Serious: Yes (Hospitalization, Other)
  Sender: FDA-Public Use
  Company Number: PHHY2014SK007596

PATIENT
  Age: 42 Year
  Sex: Male

DRUGS (2)
  1. RASILEZ [Suspect]
     Dosage: 12 TO 13 DF (150MG)
  2. ALCOHOL [Concomitant]
     Dosage: UNK UKN, UNK

REACTIONS (3)
  - Poisoning [Unknown]
  - Vomiting [Unknown]
  - Overdose [Unknown]
